FAERS Safety Report 20018319 (Version 1)
Quarter: 2021Q4

REPORT INFORMATION
  Report Type: Spontaneous
  Country: GB (occurrence: GB)
  Receive Date: 20211101
  Receipt Date: 20211101
  Transmission Date: 20220303
  Serious: Yes (Hospitalization, Other)
  Sender: FDA-Public Use
  Company Number: None

PATIENT
  Sex: Female

DRUGS (9)
  1. AMLODIPINE [Suspect]
     Active Substance: AMLODIPINE BESYLATE
     Indication: Product used for unknown indication
     Dosage: 5 MG
     Route: 065
     Dates: start: 20210902
  2. FUROSEMIDE [Suspect]
     Active Substance: FUROSEMIDE
     Indication: Product used for unknown indication
     Dosage: 20 MG, (IN 2ML INJECTION(40 MG)
     Route: 065
     Dates: start: 20210901
  3. FUROSEMIDE [Suspect]
     Active Substance: FUROSEMIDE
     Dosage: 20MG, (IN 2ML INJECTION (40MG)
     Route: 065
     Dates: start: 20210902
  4. GENTAMICIN [Suspect]
     Active Substance: GENTAMICIN
     Indication: Product used for unknown indication
     Dosage: 80MG, (IN 2ML INJECTION (200MG)
     Route: 065
     Dates: start: 20210902
  5. OMEPRAZOLE [Suspect]
     Active Substance: OMEPRAZOLE
     Indication: Product used for unknown indication
     Dosage: 20 MG
     Route: 065
     Dates: start: 20210902
  6. ONDANSETRON [Suspect]
     Active Substance: ONDANSETRON
     Indication: Product used for unknown indication
     Dosage: 4 MG, (IN 2ML INJECTION WITHIN  2 HOURS OF PIPERACILLIN WITH TAZOBACTAM)
     Route: 065
  7. PIPERACILLIN AND TAZOBACTAM [Suspect]
     Active Substance: PIPERACILLIN SODIUM\TAZOBACTAM SODIUM
     Indication: Product used for unknown indication
     Dosage: 2.25 G, ( INJECTION (4500 MG)
     Route: 065
     Dates: start: 20210901
  8. PIPERACILLIN AND TAZOBACTAM [Suspect]
     Active Substance: PIPERACILLIN SODIUM\TAZOBACTAM SODIUM
     Dosage: 2.25 G, (INJECTION (4500 MG)
     Route: 065
     Dates: start: 20210902
  9. DALTEPARIN [Suspect]
     Active Substance: DALTEPARIN
     Indication: Product used for unknown indication
     Dosage: 5000 DF, (5000 UNITS IN 0.2ML PRE-FILLED SYRINGE)
     Route: 065
     Dates: start: 20210901

REACTIONS (7)
  - Illness [Unknown]
  - Abdominal pain upper [Unknown]
  - Body temperature increased [Unknown]
  - Hypotensive crisis [Unknown]
  - Electrocardiogram abnormal [Unknown]
  - Circulatory collapse [Unknown]
  - Medication error [Unknown]
